FAERS Safety Report 7192859-2 (Version None)
Quarter: 2010Q4

REPORT INFORMATION
  Report Type: 
  Country: None (occurrence: None)
  Receive Date: 20101223
  Receipt Date: 20100828
  Transmission Date: 20110411
  Serious: No
  Sender: FDA-Public Use
  Company Number: US-AMGEN-KDL434774

PATIENT

DRUGS (1)
  1. ENBREL [Suspect]
     Indication: RHEUMATOID ARTHRITIS
     Dosage: 50 MG, QWK
     Route: 058
     Dates: start: 20100818

REACTIONS (5)
  - COUGH [None]
  - DYSPNOEA [None]
  - RHINORRHOEA [None]
  - SINUS HEADACHE [None]
  - THROAT IRRITATION [None]
